FAERS Safety Report 7662821-1 (Version None)
Quarter: 2011Q3

REPORT INFORMATION
  Report Type: 
  Country: None (occurrence: None)
  Receive Date: 20110805
  Receipt Date: 20100913
  Transmission Date: 20111222
  Serious: No
  Sender: FDA-Public Use
  Company Number: US-ABBOTT-10P-163-0670536-00

PATIENT
  Sex: Male
  Weight: 63.56 kg

DRUGS (5)
  1. ASPIRIN [Concomitant]
     Indication: PRODUCT USED FOR UNKNOWN INDICATION
     Dosage: TAKES MID MORNING
  2. NIASPAN [Suspect]
     Indication: CORONARY ARTERY DISEASE
     Dosage: 750MG/EVENING FOLLOWING BIGGEST MEAL
     Dates: start: 20100911
  3. NATURAL VITAMIN [Concomitant]
     Indication: PRODUCT USED FOR UNKNOWN INDICATION
     Dosage: EVERY AM
  4. LIPITOR [Suspect]
     Indication: PRODUCT USED FOR UNKNOWN INDICATION
     Dosage: 40MG EVERY AM
     Dates: start: 20100911
  5. VERAPAMIL [Concomitant]
     Indication: PRODUCT USED FOR UNKNOWN INDICATION
     Dosage: EVERY AM

REACTIONS (4)
  - PRURITUS [None]
  - SOMNOLENCE [None]
  - PALPITATIONS [None]
  - NAUSEA [None]
